FAERS Safety Report 5061203-9 (Version None)
Quarter: 2006Q3

REPORT INFORMATION
  Report Type: 
  Country: None (occurrence: None)
  Receive Date: 20060721
  Receipt Date: 20060721
  Transmission Date: 20061208
  Serious: Yes (Other)
  Sender: FDA-Public Use
  Company Number: None

PATIENT
  Sex: Female

DRUGS (6)
  1. FLUCONAZOLE [Suspect]
     Indication: FUNGAL INFECTION
     Dosage: 150MG ONE TWICE WEEKLY PO
     Route: 048
     Dates: start: 20060713
  2. HYDROCODONE BITARTRATE + ACETAMINOPHEN [Concomitant]
  3. LYRICA [Concomitant]
  4. PREMARIN [Concomitant]
  5. AMBIEN [Concomitant]
  6. ASACOL [Concomitant]

REACTIONS (2)
  - CHEST DISCOMFORT [None]
  - CHEST PAIN [None]
